FAERS Safety Report 11636873 (Version 1)
Quarter: 2015Q4

REPORT INFORMATION
  Report Type: Spontaneous
  Country: CA (occurrence: CA)
  Receive Date: 20151016
  Receipt Date: 20151016
  Transmission Date: 20160304
  Serious: Yes (Death)
  Sender: FDA-Public Use
  Company Number: CA-TEVA-600293ACC

PATIENT
  Age: 65 Year
  Sex: Male

DRUGS (7)
  1. AZITHROMYCIN [Suspect]
     Active Substance: AZITHROMYCIN ANHYDROUS
     Indication: CELLULITIS
     Route: 065
  2. GABAPENTIN. [Concomitant]
     Active Substance: GABAPENTIN
  3. VALPROIC ACID. [Concomitant]
     Active Substance: VALPROIC ACID
  4. QUETIAPINE [Concomitant]
     Active Substance: QUETIAPINE
  5. ASPIRIN. [Concomitant]
     Active Substance: ASPIRIN
  6. METOPROLOL [Concomitant]
     Active Substance: METOPROLOL
  7. ZELDOX [Concomitant]
     Active Substance: ZIPRASIDONE

REACTIONS (5)
  - Dyspnoea [Fatal]
  - Tachypnoea [Fatal]
  - Cough [Fatal]
  - Respiratory failure [Fatal]
  - Pulmonary congestion [Fatal]
